FAERS Safety Report 7315164-X (Version None)
Quarter: 2011Q1

REPORT INFORMATION
  Report Type: 
  Country: None (occurrence: None)
  Receive Date: 20110218
  Receipt Date: 20110218
  Transmission Date: 20110831
  Serious: Yes (Disabling, Other)
  Sender: FDA-Public Use
  Company Number: None

PATIENT
  Age: 12 Year
  Sex: Female
  Weight: 58.9676 kg

DRUGS (2)
  1. FOCALIN [Suspect]
     Indication: ATTENTION DEFICIT/HYPERACTIVITY DISORDER
     Dosage: 18MG 1 TIME DAILY PO
     Route: 048
     Dates: start: 20071110, end: 20071210
  2. VYVANSE [Suspect]
     Indication: ATTENTION DEFICIT/HYPERACTIVITY DISORDER
     Dosage: 70 MG 1 TIME DAILY PO
     Route: 048
     Dates: start: 20080110, end: 20080428

REACTIONS (3)
  - DYSGEUSIA [None]
  - ALOPECIA [None]
  - WEIGHT DECREASED [None]
